FAERS Safety Report 5912724-5 (Version None)
Quarter: 2008Q4

REPORT INFORMATION
  Report Type: 
  Country: None (occurrence: None)
  Receive Date: 20081008
  Receipt Date: 20080926
  Transmission Date: 20090506
  Serious: Yes (Hospitalization)
  Sender: FDA-Public Use
  Company Number: US-ELI_LILLY_AND_COMPANY-US200808001064

PATIENT
  Age: 76 Year
  Sex: Male
  Weight: 78.912 kg

DRUGS (9)
  1. CYMBALTA [Suspect]
     Indication: DEPRESSION
     Dosage: 30 MG, DAILY (1/D)
     Dates: start: 20080505, end: 20080501
  2. CYMBALTA [Suspect]
     Dosage: 60 MG, DAILY (1/D)
     Dates: start: 20080501, end: 20080701
  3. TRICOR [Concomitant]
     Indication: BLOOD CHOLESTEROL
  4. LIPITOR [Concomitant]
     Indication: BLOOD CHOLESTEROL
  5. DIOVAN [Concomitant]
     Indication: HYPERTENSION
  6. PROTONIX [Concomitant]
     Indication: GASTROOESOPHAGEAL REFLUX DISEASE
  7. ATIVAN [Concomitant]
     Indication: ANXIETY
  8. METFORMIN HCL [Concomitant]
     Indication: DIABETES MELLITUS
  9. FOLIC ACID [Concomitant]

REACTIONS (18)
  - ACIDOSIS [None]
  - ADENOCARCINOMA [None]
  - BLOOD GLUCOSE DECREASED [None]
  - CHOLESTASIS [None]
  - CONFUSIONAL STATE [None]
  - DEPRESSION [None]
  - DRUG INEFFECTIVE [None]
  - HEPATIC CIRRHOSIS [None]
  - HEPATIC CYST [None]
  - HEPATITIS [None]
  - HEPATORENAL FAILURE [None]
  - HYPOTENSION [None]
  - INTERNATIONAL NORMALISED RATIO DECREASED [None]
  - JAUNDICE CHOLESTATIC [None]
  - LIVER DISORDER [None]
  - PANCREATITIS CHRONIC [None]
  - RENAL CYST [None]
  - WEIGHT DECREASED [None]
